FAERS Safety Report 5146793-X (Version None)
Quarter: 2006Q4

REPORT INFORMATION
  Report Type: 
  Country: None (occurrence: None)
  Receive Date: 20061107
  Receipt Date: 20061107
  Transmission Date: 20070319
  Serious: Yes (Hospitalization)
  Sender: FDA-Public Use
  Company Number: None

PATIENT
  Age: 61 Year
  Sex: Male
  Weight: 120.6568 kg

DRUGS (7)
  1. MORPHINE [Suspect]
     Indication: BACK PAIN
     Dosage: 60 MG BID PO
     Route: 048
     Dates: start: 20041104, end: 20061106
  2. FUROSEMIDE [Concomitant]
  3. IBUPROFEN [Concomitant]
  4. LISINOPRIL [Concomitant]
  5. MORPHINE SO4 [Concomitant]
  6. PAROXETINE HCL [Concomitant]
  7. POTASSIUM CHLORIDE [Concomitant]

REACTIONS (6)
  - BACK PAIN [None]
  - BEDRIDDEN [None]
  - DRUG DOSE OMISSION [None]
  - IMMOBILE [None]
  - MENTAL STATUS CHANGES [None]
  - SKIN ULCER [None]
